FAERS Safety Report 21889799 (Version 7)
Quarter: 2024Q3

REPORT INFORMATION
  Report Type: Spontaneous
  Country: US (occurrence: US)
  Receive Date: 20230120
  Receipt Date: 20240903
  Transmission Date: 20241016
  Serious: Yes (Hospitalization)
  Sender: PFIZER
  Company Number: US-PFIZER INC-PV202300011798

PATIENT
  Age: 86 Year
  Sex: Female
  Weight: 55.329 kg

DRUGS (4)
  1. IBRANCE [Suspect]
     Active Substance: PALBOCICLIB
     Indication: Breast cancer female
     Dosage: 125 MG
     Dates: start: 20201101
  2. IBRANCE [Suspect]
     Active Substance: PALBOCICLIB
     Dosage: 2.5 MG, 1X/DAY
     Route: 048
  3. IBRANCE [Suspect]
     Active Substance: PALBOCICLIB
     Dosage: 125 MG, CYCLIC (1 PO QD QUANTITY 90)
     Route: 048
  4. IBRANCE [Suspect]
     Active Substance: PALBOCICLIB
     Dosage: 125 MG TAKE 1 TABLET BY MOUTH DAILY FOR 21 DAYS WITH 7 DAYS OFF FOR A 28 DAY CYCLE
     Route: 048

REACTIONS (5)
  - Malaise [Not Recovered/Not Resolved]
  - Hypoacusis [Not Recovered/Not Resolved]
  - Product prescribing error [Unknown]
  - Oral pain [Unknown]
  - Nausea [Unknown]

NARRATIVE: CASE EVENT DATE: 20230118
